FAERS Safety Report 5979512-5 (Version None)
Quarter: 2008Q4

REPORT INFORMATION
  Report Type: 
  Country: None (occurrence: None)
  Receive Date: 20081204
  Receipt Date: 20081201
  Transmission Date: 20090506
  Serious: Yes (Death, Hospitalization, Other)
  Sender: FDA-Public Use
  Company Number: US-ROXANE LABORATORIES, INC.-2008-RO-00310RO

PATIENT
  Age: 26 Year
  Sex: Male

DRUGS (13)
  1. CYCLOPHOSPHAMIDE [Suspect]
     Indication: NON-HODGKIN'S LYMPHOMA STAGE II
  2. PREDNISONE TAB [Suspect]
     Indication: NON-HODGKIN'S LYMPHOMA STAGE II
  3. DOXORUBICIN HCL [Suspect]
     Indication: NON-HODGKIN'S LYMPHOMA STAGE II
  4. VINCRISTINE [Suspect]
     Indication: NON-HODGKIN'S LYMPHOMA STAGE II
  5. VANCOMYCIN [Concomitant]
     Indication: LEUKOENCEPHALOPATHY
  6. CEFTRIAXONE [Concomitant]
     Indication: LEUKOENCEPHALOPATHY
  7. AMPICILLIN [Concomitant]
     Indication: LEUKOENCEPHALOPATHY
  8. GANCICLOVIR [Concomitant]
     Indication: LEUKOENCEPHALOPATHY
  9. IVERMECTIN [Concomitant]
     Indication: LEUKOENCEPHALOPATHY
  10. LEVOFLOXACIN [Concomitant]
     Indication: PYREXIA
  11. FLUIDS [Concomitant]
     Indication: PYREXIA
     Route: 042
  12. ANTPYRETICS [Concomitant]
     Indication: PYREXIA
  13. ANTIEMETICS [Concomitant]
     Indication: NAUSEA

REACTIONS (4)
  - LEUKOENCEPHALOPATHY [None]
  - NAUSEA [None]
  - NEUTROPENIA [None]
  - PYREXIA [None]
